FAERS Safety Report 7982763-1 (Version None)
Quarter: 2011Q4

REPORT INFORMATION
  Report Type: 
  Country: None (occurrence: None)
  Receive Date: 20111215
  Receipt Date: 20111213
  Transmission Date: 20120403
  Serious: Yes (Other)
  Sender: FDA-Public Use
  Company Number: US-PFIZER INC-2011304071

PATIENT
  Sex: Female
  Weight: 47.166 kg

DRUGS (11)
  1. CLONAZEPAM [Concomitant]
     Dosage: 0.5 MG, UNK
  2. CALCIUM MAGNESIUM [Concomitant]
     Dosage: UNK
  3. GENOTROPIN [Suspect]
     Dosage: 0.4 MG, 1X/DAY
     Route: 058
  4. LOVAZA [Concomitant]
     Dosage: 1 G, UNK
  5. ESTRADIOL [Concomitant]
     Dosage: 0.05 MG, UNK
  6. SAVELLA [Concomitant]
     Dosage: 50 MG, UNK
  7. VITAMIN D [Concomitant]
     Dosage: 2000 IU, UNK
  8. LEVOXYL [Concomitant]
     Dosage: 100 UG, UNK
  9. AMBIEN [Concomitant]
     Dosage: 10 MG, UNK
  10. CHOLINE BITARTRATE [Concomitant]
     Dosage: 250 MG, UNK
  11. PRAVASTATIN [Concomitant]
     Dosage: 40 MG, UNK

REACTIONS (3)
  - WEIGHT DECREASED [None]
  - HEADACHE [None]
  - FATIGUE [None]
